FAERS Safety Report 7182981-9 (Version None)
Quarter: 2010Q4

REPORT INFORMATION
  Report Type: 
  Country: None (occurrence: None)
  Receive Date: 20101222
  Receipt Date: 20101209
  Transmission Date: 20110411
  Serious: Yes (Hospitalization, Other)
  Sender: FDA-Public Use
  Company Number: US-CELGENEUS-163-20785-10121149

PATIENT
  Sex: Male

DRUGS (1)
  1. THALOMID [Suspect]
     Indication: RENAL CANCER
     Route: 048
     Dates: start: 20101101

REACTIONS (4)
  - CONFUSIONAL STATE [None]
  - DIARRHOEA [None]
  - HALLUCINATION [None]
  - HEARING IMPAIRED [None]
